FAERS Safety Report 7821222-3 (Version None)
Quarter: 2011Q4

REPORT INFORMATION
  Report Type: 
  Country: None (occurrence: None)
  Receive Date: 20111018
  Receipt Date: 20111003
  Transmission Date: 20120403
  Serious: Yes (Other)
  Sender: FDA-Public Use
  Company Number: CA-ELI_LILLY_AND_COMPANY-CA201110000295

PATIENT
  Sex: Male

DRUGS (15)
  1. ZIPRASIDONE HYDROCHLORIDE [Concomitant]
  2. LIPITOR [Concomitant]
  3. DIVALPROEX SODIUM [Concomitant]
  4. ZYPREXA [Suspect]
     Dosage: 7.5 MG, QD
     Dates: start: 19991001, end: 20100715
  5. ZYPREXA [Suspect]
     Dosage: 10 MG, QD
  6. AMLODIPINE [Concomitant]
  7. FUROSEMIDE [Concomitant]
  8. ZYPREXA ZYDIS [Suspect]
     Dosage: 15 MG, QD
  9. PRANOLOL [Concomitant]
  10. ZYPREXA ZYDIS [Suspect]
     Dosage: 30 MG, QD
  11. ZYPREXA [Suspect]
     Dosage: 2.5 MG, EACH MORNING
  12. PROCYCLIDINE HYDROCHLORIDE 2MG TAB [Concomitant]
  13. STRATTERA [Concomitant]
  14. RISPERIDONE [Concomitant]
  15. ZYPREXA [Suspect]
     Dosage: 5 MG, EACH EVENING

REACTIONS (3)
  - RENAL TRANSPLANT [None]
  - OVERDOSE [None]
  - DIABETES MELLITUS [None]
